FAERS Safety Report 16472973 (Version 1)
Quarter: 2019Q2

REPORT INFORMATION
  Report Type: Spontaneous
  Country: DE (occurrence: DE)
  Receive Date: 20190625
  Receipt Date: 20190625
  Transmission Date: 20190711
  Serious: Yes (Death, Hospitalization, Congenital Anomaly, Other)
  Sender: FDA-Public Use
  Company Number: PHHY2019DE143576

PATIENT
  Sex: Female
  Weight: 2.9 kg

DRUGS (9)
  1. APSOMOL [Concomitant]
     Active Substance: ALBUTEROL
     Indication: FOETAL EXPOSURE DURING PREGNANCY
     Dosage: UNK(AT MOTHER GESTATIONAL WEEK: 13.1-13.6)
     Route: 064
     Dates: start: 20101220, end: 20101225
  2. METFORMIN HYDROCHLORIDE. [Suspect]
     Active Substance: METFORMIN HYDROCHLORIDE
     Indication: FOETAL EXPOSURE DURING PREGNANCY
     Dosage: (MOTHER?S DOSE : 1000 OT, UNK (AT MOTHER GESTATIONAL WEEK:0-7))
     Route: 064
     Dates: start: 201009, end: 201011
  3. UTROGEST [Concomitant]
     Active Substance: PROGESTERONE
     Indication: FOETAL EXPOSURE DURING PREGNANCY
     Dosage: (MOTHER^S DOSE: 100 MG, QD (AT MOTHER?S GESTATIONAL WEEK 0-8 ))
     Route: 064
     Dates: start: 20100912, end: 20101114
  4. EMSER [Concomitant]
     Indication: FOETAL EXPOSURE DURING PREGNANCY
     Dosage: (AT MOTHER^S GESTATIONAL WEEK: 13.1-14)
     Route: 064
     Dates: start: 20101220, end: 20101226
  5. L-THYROXINE [Concomitant]
     Active Substance: LEVOTHYROXINE
     Indication: FOETAL EXPOSURE DURING PREGNANCY
     Dosage: AT MOTHER^S GESTATIONAL WEEK: 0-40, 100 UG, QD
     Route: 064
     Dates: start: 20100913, end: 20110626
  6. EBENOL [Concomitant]
     Indication: FOETAL EXPOSURE DURING PREGNANCY
     Dosage: (AT MOTHER^S GESTATIONAL WEEK:0-8.3)
     Route: 064
     Dates: start: 20101114, end: 20101117
  7. KADEFUNGIN [Concomitant]
     Active Substance: CLOTRIMAZOLE
     Indication: FOETAL EXPOSURE DURING PREGNANCY
     Dosage: UNK, (2ND TRIMESTER)
     Route: 064
  8. CETRIZINE [Suspect]
     Active Substance: CETIRIZINE HYDROCHLORIDE
     Indication: FOETAL EXPOSURE DURING PREGNANCY
     Dosage: (AT MOTHER^S GESTATIONAL WEEK 8-9)
     Route: 064
  9. FOLIO FORTE [Concomitant]
     Active Substance: FOLIC ACID\VITAMINS
     Indication: FOETAL EXPOSURE DURING PREGNANCY
     Dosage: 0.8 MG, QD (0-28.1 GESTATIONAL WEEK)
     Route: 064
     Dates: start: 20100919, end: 20110404

REACTIONS (4)
  - Low birth weight baby [Unknown]
  - Hypoplastic left heart syndrome [Fatal]
  - Necrotising colitis [Unknown]
  - Turner^s syndrome [Not Recovered/Not Resolved]

NARRATIVE: CASE EVENT DATE: 2011
